FAERS Safety Report 8525938 (Version 3)
Quarter: 2015Q1

REPORT INFORMATION
  Report Type: Report from Study
  Country: US (occurrence: US)
  Receive Date: 20120423
  Receipt Date: 20150324
  Transmission Date: 20150721
  Serious: Yes (Death)
  Sender: FDA-Public Use
  Company Number: US-ROCHE-1060872

PATIENT
  Sex: Female
  Weight: 74 kg

DRUGS (15)
  1. ADRIAMYCIN [Concomitant]
     Active Substance: DOXORUBICIN HYDROCHLORIDE
     Route: 042
  2. CYTOXAN [Concomitant]
     Active Substance: CYCLOPHOSPHAMIDE
     Route: 042
  3. RITUXAN [Suspect]
     Active Substance: RITUXIMAB
     Indication: LYMPHOMA
  4. ALOXI [Concomitant]
     Active Substance: PALONOSETRON HYDROCHLORIDE
     Route: 042
  5. ONCOVIN [Concomitant]
     Active Substance: VINCRISTINE SULFATE
     Route: 065
  6. NEULASTA [Concomitant]
     Active Substance: PEGFILGRASTIM
     Route: 065
  7. DECADRON [Concomitant]
     Active Substance: DEXAMETHASONE
     Route: 042
  8. DOXORUBICIN [Concomitant]
     Active Substance: DOXORUBICIN
     Route: 042
  9. RITUXAN [Suspect]
     Active Substance: RITUXIMAB
     Indication: CENTRAL NERVOUS SYSTEM LYMPHOMA
     Dosage: ON 09/JAN/2012, HE RECIVED 690 MG?LAST DOSE OF RITUXIMAB BEFORE DEATH WAS ADMINISTERED IN 02/FEB/201
     Route: 042
     Dates: start: 20120109
  10. GRANISETRON [Concomitant]
     Active Substance: GRANISETRON
     Route: 042
  11. BENADRYL [Concomitant]
     Active Substance: DIPHENHYDRAMINE HYDROCHLORIDE
     Route: 042
  12. HEPARIN [Concomitant]
     Active Substance: HEPARIN SODIUM
  13. DEXAMETHASONE. [Concomitant]
     Active Substance: DEXAMETHASONE
     Route: 042
  14. DEMEROL [Concomitant]
     Active Substance: MEPERIDINE HYDROCHLORIDE
     Route: 042
  15. TYLENOL [Concomitant]
     Active Substance: ACETAMINOPHEN
     Route: 048

REACTIONS (1)
  - Death [Fatal]
